FAERS Safety Report 7361935-3 (Version None)
Quarter: 2011Q1

REPORT INFORMATION
  Report Type: 
  Country: None (occurrence: None)
  Receive Date: 20110318
  Receipt Date: 20110315
  Transmission Date: 20110831
  Serious: Yes (Life-Threatening, Hospitalization)
  Sender: FDA-Public Use
  Company Number: US-B.I. PHARMACEUTICALS,INC./RIDGEFIELD-2011-BP-08007BP

PATIENT
  Sex: Male

DRUGS (1)
  1. PRADAXA [Suspect]
     Indication: ATRIAL FIBRILLATION
     Dosage: 300 MG
     Route: 048
     Dates: start: 20110201, end: 20110301

REACTIONS (8)
  - LIVER FUNCTION TEST ABNORMAL [None]
  - DIALYSIS [None]
  - HEPATIC FAILURE [None]
  - RENAL FAILURE [None]
  - MULTI-ORGAN FAILURE [None]
  - INTERNATIONAL NORMALISED RATIO INCREASED [None]
  - BLOOD POTASSIUM ABNORMAL [None]
  - BLOOD POTASSIUM INCREASED [None]
